FAERS Safety Report 14283668 (Version 1)
Quarter: 2017Q4

REPORT INFORMATION
  Report Type: Spontaneous
  Country: US (occurrence: None)
  Receive Date: 20171213
  Receipt Date: 20171213
  Transmission Date: 20180321
  Serious: Yes (Other)
  Sender: FDA-Public Use
  Company Number: None

PATIENT
  Age: 42 Year
  Sex: Female

DRUGS (1)
  1. AZITHROMYCIN 250MG TEVA [Suspect]
     Active Substance: AZITHROMYCIN DIHYDRATE
     Indication: BRONCHITIS
     Dosage: 250MG 2 TABS DAY 1 THEN 1 TAB DAILY, ORAL
     Route: 048
     Dates: start: 20151202, end: 20151207

REACTIONS (4)
  - Haemorrhage [None]
  - Rash [None]
  - Drug ineffective [None]
  - Pruritus [None]

NARRATIVE: CASE EVENT DATE: 20151209
